FAERS Safety Report 7597468-9 (Version None)
Quarter: 2011Q3

REPORT INFORMATION
  Report Type: 
  Country: None (occurrence: None)
  Receive Date: 20110708
  Receipt Date: 20110628
  Transmission Date: 20111222
  Serious: Yes (Disabling, Other)
  Sender: FDA-Public Use
  Company Number: PHNU2007DE04190

PATIENT
  Sex: Female
  Weight: 67 kg

DRUGS (3)
  1. HERCEPTIN [Concomitant]
     Dates: start: 20060918
  2. XELODA [Concomitant]
     Indication: BREAST CANCER METASTATIC
     Dosage: 3000 MG, UNK
     Route: 048
     Dates: start: 20060425, end: 20070219
  3. ZOMETA [Suspect]
     Indication: METASTASES TO BONE
     Dosage: 3 MG, QMO
     Route: 042
     Dates: start: 20061030, end: 20070329

REACTIONS (5)
  - INFLAMMATION [None]
  - NAUSEA [None]
  - OSTEONECROSIS OF JAW [None]
  - MYALGIA [None]
  - STOMATITIS [None]
